FAERS Safety Report 15746561 (Version 2)
Quarter: 2022Q2

REPORT INFORMATION
  Report Type: Spontaneous
  Country: US (occurrence: US)
  Receive Date: 20181220
  Receipt Date: 20220419
  Transmission Date: 20220721
  Serious: Yes (Death, Hospitalization)
  Sender: FDA-Public Use
  Company Number: US-TEVA-2018-US-989126

PATIENT
  Age: 28 Year
  Sex: Male

DRUGS (19)
  1. TOPIRAMATE [Suspect]
     Active Substance: TOPIRAMATE
     Indication: Status epilepticus
     Route: 065
  2. PROPOFOL [Suspect]
     Active Substance: PROPOFOL
     Indication: Status epilepticus
     Dosage: HIGH DOSES
     Route: 065
  3. PHENOBARBITAL [Suspect]
     Active Substance: PHENOBARBITAL
     Indication: Status epilepticus
     Route: 065
  4. MIDAZOLAM [Interacting]
     Active Substance: MIDAZOLAM
     Indication: Status epilepticus
     Dosage: INFUSION
  5. MIDAZOLAM [Interacting]
     Active Substance: MIDAZOLAM
     Dosage: INFUSION
  6. MIDAZOLAM [Interacting]
     Active Substance: MIDAZOLAM
     Dosage: INFUSION
  7. KETAMINE [Interacting]
     Active Substance: KETAMINE
     Indication: Status epilepticus
     Dosage: INFUSION
  8. KETAMINE [Interacting]
     Active Substance: KETAMINE
     Indication: Seizure
     Dosage: INFUSION
  9. KETAMINE [Interacting]
     Active Substance: KETAMINE
     Indication: Seizure
     Dosage: INFUSION
  10. FELBAMATE [Concomitant]
     Active Substance: FELBAMATE
     Indication: Status epilepticus
     Route: 065
  11. TIAGABINE [Concomitant]
     Active Substance: TIAGABINE
     Indication: Status epilepticus
  12. ESLICARBAZEPINE [Concomitant]
     Active Substance: ESLICARBAZEPINE
     Indication: Status epilepticus
  13. CLOBAZAM [Concomitant]
     Active Substance: CLOBAZAM
     Indication: Status epilepticus
  14. VIGABATRIN [Concomitant]
     Active Substance: VIGABATRIN
     Indication: Status epilepticus
     Route: 065
  15. PHENYTOIN [Concomitant]
     Active Substance: PHENYTOIN
     Indication: Status epilepticus
     Route: 065
  16. LEVETIRACETAM [Concomitant]
     Active Substance: LEVETIRACETAM
     Indication: Status epilepticus
     Route: 065
  17. FENTANYL [Concomitant]
     Active Substance: FENTANYL
     Indication: Status epilepticus
     Route: 065
  18. LORAZEPAM [Concomitant]
     Active Substance: LORAZEPAM
     Indication: Status epilepticus
     Route: 065
  19. CLONAZEPAM [Concomitant]
     Active Substance: CLONAZEPAM
     Indication: Status epilepticus
     Route: 065

REACTIONS (9)
  - Cardiac arrest [Fatal]
  - Bundle branch block right [Unknown]
  - Bradycardia [Unknown]
  - Hypotension [Unknown]
  - Metabolic acidosis [Unknown]
  - Hyperchloraemia [Unknown]
  - Drug interaction [Unknown]
  - Propofol infusion syndrome [Unknown]
  - Blood lactic acid increased [Unknown]
